FAERS Safety Report 4682595-6 (Version None)
Quarter: 2005Q2

REPORT INFORMATION
  Report Type: 
  Country: None (occurrence: None)
  Receive Date: 20050531
  Receipt Date: 20050411
  Transmission Date: 20051028
  Serious: No
  Sender: FDA-Public Use
  Company Number: 2005BI007428

PATIENT
  Age: 59 Year
  Sex: Male

DRUGS (8)
  1. AMEVIVE [Suspect]
     Indication: PSORIASIS
     Dosage: 15 MG;QW;IM
     Route: 030
     Dates: end: 20040806
  2. AMEVIVE [Suspect]
     Indication: PSORIASIS
     Dosage: 15 MG;QW;IM
     Route: 030
  3. ALLOPURINOL [Concomitant]
  4. COLCHICINE [Concomitant]
  5. INDOMETHACIN [Concomitant]
  6. AVAPRO [Concomitant]
  7. ERYXITHROL [Concomitant]
  8. NEXIUM [Concomitant]

REACTIONS (2)
  - CD4 LYMPHOCYTES DECREASED [None]
  - PSORIASIS [None]
